FAERS Safety Report 21978749 (Version 3)
Quarter: 2023Q2

REPORT INFORMATION
  Report Type: Spontaneous
  Country: US (occurrence: US)
  Receive Date: 20230210
  Receipt Date: 20230530
  Transmission Date: 20230721
  Serious: No
  Sender: FDA-Public Use
  Company Number: US-IDORSIA-003371-2023-US

PATIENT
  Age: 62 Year
  Sex: Female

DRUGS (2)
  1. QUVIVIQ [Suspect]
     Active Substance: DARIDOREXANT
     Indication: Insomnia
     Dosage: 25 MG, QD
     Route: 048
     Dates: start: 20230120
  2. QUVIVIQ [Suspect]
     Active Substance: DARIDOREXANT
     Dosage: 50MG, QD
     Route: 048

REACTIONS (6)
  - Dry mouth [Recovering/Resolving]
  - Nocturia [Recovering/Resolving]
  - Weight increased [Not Recovered/Not Resolved]
  - Flatulence [Recovered/Resolved]
  - Eructation [Recovered/Resolved]
  - Drug ineffective [Recovered/Resolved]

NARRATIVE: CASE EVENT DATE: 20230120
